FAERS Safety Report 9026117 (Version 2)
Quarter: 2013Q1

REPORT INFORMATION
  Report Type: Spontaneous
  Country: US (occurrence: None)
  Receive Date: 20130108
  Receipt Date: 20130305
  Transmission Date: 20140127
  Serious: Yes (Other)
  Sender: FDA-Public Use
  Company Number: 2012-7820

PATIENT
  Age: 47 Year
  Sex: Female
  Weight: 75 kg

DRUGS (4)
  1. DYSPORT [Suspect]
     Indication: SKIN WRINKLING
     Dosage: 97.5 UNITS (97.5 UNITS, 1 IN 1
     Route: 030
     Dates: start: 20121102, end: 20121102
  2. DYSPORT [Suspect]
     Indication: SKIN WRINKLING
     Dosage: 97.5 UNITS (97.5 UNITS, 1 IN 1
     Route: 030
     Dates: start: 20121102, end: 20121102
  3. AMBIEN [Concomitant]
  4. UNSPECIFIED DIET MEDICATION (ALL OTHER THERAPEUTIC [Concomitant]

REACTIONS (17)
  - Drug hypersensitivity [None]
  - Muscle disorder [None]
  - Headache [None]
  - Dysphonia [None]
  - Hypoaesthesia [None]
  - Contusion [None]
  - Visual impairment [None]
  - Muscle tightness [None]
  - Myalgia [None]
  - Pain [None]
  - Sinus disorder [None]
  - Influenza like illness [None]
  - VIIth nerve paralysis [None]
  - Dysgeusia [None]
  - Hypoaesthesia oral [None]
  - Ear pain [None]
  - Nasopharyngitis [None]
